FAERS Safety Report 15283583 (Version 1)
Quarter: 2018Q3

REPORT INFORMATION
  Report Type: Spontaneous
  Country: AU (occurrence: AU)
  Receive Date: 20180816
  Receipt Date: 20180816
  Transmission Date: 20181010
  Serious: Yes (Other)
  Sender: FDA-Public Use
  Company Number: AU-VERTEX PHARMACEUTICALS-2016-005609

PATIENT
  Sex: Female

DRUGS (1)
  1. KALYDECO [Suspect]
     Active Substance: IVACAFTOR
     Indication: CYSTIC FIBROSIS
     Dosage: 2 DOSAGE FORM, QD
     Route: 048
     Dates: start: 20141218

REACTIONS (6)
  - Headache [Not Recovered/Not Resolved]
  - Dizziness [Unknown]
  - Pulmonary function test decreased [Unknown]
  - Malaise [Not Recovered/Not Resolved]
  - Therapy cessation [Recovered/Resolved]
  - Superior vena cava occlusion [Unknown]

NARRATIVE: CASE EVENT DATE: 2014
